FAERS Safety Report 8457135-6 (Version None)
Quarter: 2012Q2

REPORT INFORMATION
  Report Type: 
  Country: None (occurrence: None)
  Receive Date: 20120615
  Receipt Date: 20120604
  Transmission Date: 20120825
  Serious: Yes (Life-Threatening, Other)
  Sender: FDA-Public Use
  Company Number: 2012P1038634

PATIENT
  Age: 5 Day
  Sex: Female
  Weight: 3.34 kg

DRUGS (1)
  1. FENTANYL CITRATE [Suspect]
     Indication: ANALGESIC THERAPY
     Dosage: 3 UG;X3

REACTIONS (3)
  - OXYGEN SATURATION DECREASED [None]
  - MUSCLE RIGIDITY [None]
  - CYANOSIS [None]
